FAERS Safety Report 8920982 (Version 2)
Quarter: 2012Q4

REPORT INFORMATION
  Report Type: 
  Country: US (occurrence: US)
  Receive Date: 20121121
  Receipt Date: 20121127
  Transmission Date: 20130627
  Serious: Yes (Other)
  Sender: FDA-Public Use
  Company Number: US-PFIZER INC-2012290279

PATIENT
  Age: 71 Year
  Sex: Female
  Weight: 59.9 kg

DRUGS (10)
  1. PROTONIX [Suspect]
     Indication: GASTROESOPHAGEAL REFLUX DISEASE
     Dosage: 40 mg, 1x/day
     Route: 048
  2. SINGULAIR [Concomitant]
  3. ISOSORBIDE [Concomitant]
  4. ATACAND [Concomitant]
     Dosage: 4 mg, UNK
  5. NASACORT [Concomitant]
  6. NASONEX [Concomitant]
     Dosage: UNK
     Route: 045
  7. ALLEGRA [Concomitant]
     Dosage: 180 mg, UNK
  8. ADVAIR [Concomitant]
     Dosage: 250/50 mcg
  9. ASPIRIN [Concomitant]
     Dosage: UNK
  10. MUCINEX [Concomitant]
     Dosage: UNK

REACTIONS (7)
  - Glaucoma [Unknown]
  - Cataract [Unknown]
  - Cardiovascular disorder [Unknown]
  - Body height decreased [Unknown]
  - Eye oedema [Unknown]
  - Impaired healing [Unknown]
  - Eye infection [Recovering/Resolving]
